FAERS Safety Report 18168303 (Version 1)
Quarter: 2020Q3

REPORT INFORMATION
  Report Type: Report from Study
  Country: CA (occurrence: CA)
  Receive Date: 20200819
  Receipt Date: 20200819
  Transmission Date: 20201103
  Serious: Yes (Hospitalization)
  Sender: FDA-Public Use
  Company Number: CA-ASTRAZENECA-2020SF03639

PATIENT
  Sex: Female

DRUGS (9)
  1. BREO ELLIPTA [Concomitant]
     Active Substance: FLUTICASONE FUROATE\VILANTEROL TRIFENATATE
  2. IRON [Concomitant]
     Active Substance: IRON
  3. APO HYDRO [Concomitant]
     Active Substance: HYDROCHLOROTHIAZIDE
  4. TEVA BUDESONIDE [Concomitant]
     Active Substance: BUDESONIDE
  5. SYNTHROID [Concomitant]
     Active Substance: LEVOTHYROXINE SODIUM
  6. PANTOPRAZOLE [Concomitant]
     Active Substance: PANTOPRAZOLE
  7. URSO [Concomitant]
     Active Substance: URSODIOL
  8. VENTOLIN [Concomitant]
     Active Substance: ALBUTEROL SULFATE
  9. FASENRA [Suspect]
     Active Substance: BENRALIZUMAB
     Indication: ASTHMA
     Dosage: 30.0MG UNKNOWN
     Route: 058
     Dates: start: 20190322

REACTIONS (7)
  - Movement disorder [Unknown]
  - Confusional state [Unknown]
  - Balance disorder [Unknown]
  - Cystitis [Recovering/Resolving]
  - Headache [Not Recovered/Not Resolved]
  - Urosepsis [Recovering/Resolving]
  - Abdominal pain [Not Recovered/Not Resolved]
